FAERS Safety Report 17910322 (Version 2)
Quarter: 2020Q3

REPORT INFORMATION
  Report Type: Spontaneous
  Country: US (occurrence: US)
  Receive Date: 20200618
  Receipt Date: 20200707
  Transmission Date: 20201103
  Serious: No
  Sender: FDA-Public Use
  Company Number: US-UNITED THERAPEUTICS-UNT-2020-007291

PATIENT
  Sex: Female
  Weight: 95.24 kg

DRUGS (5)
  1. REMODULIN [Suspect]
     Active Substance: TREPROSTINIL
     Indication: PULMONARY ARTERIAL HYPERTENSION
     Dosage: UNK UNK, CONTINUING
     Route: 058
     Dates: start: 20200430
  2. TADALAFIL. [Concomitant]
     Active Substance: TADALAFIL
     Indication: PRODUCT USED FOR UNKNOWN INDICATION
     Dosage: UNK
     Route: 065
  3. REMODULIN [Suspect]
     Active Substance: TREPROSTINIL
     Dosage: 0.0075 ?G/KG, CONTINUING
     Route: 058
  4. REMODULIN [Suspect]
     Active Substance: TREPROSTINIL
     Indication: PULMONARY ARTERIAL HYPERTENSION
     Dosage: 0.012 ?G/KG, CONTINUING
     Route: 058
     Dates: start: 2020
  5. REMODULIN [Suspect]
     Active Substance: TREPROSTINIL
     Dosage: 0.00125 ?G/KG, CONTINUING
     Route: 058

REACTIONS (11)
  - Infusion site erythema [Unknown]
  - Weight decreased [Unknown]
  - Pain in jaw [Unknown]
  - Infusion site pain [Unknown]
  - Flushing [Unknown]
  - Platelet count decreased [Unknown]
  - Rash [Recovered/Resolved]
  - Nausea [Unknown]
  - Headache [Unknown]
  - Infusion site vesicles [Recovering/Resolving]
  - Infusion site haemorrhage [Unknown]

NARRATIVE: CASE EVENT DATE: 2020
